FAERS Safety Report 9782955 (Version 1)
Quarter: 2013Q4

REPORT INFORMATION
  Report Type: Spontaneous
  Country: US (occurrence: US)
  Receive Date: 20131226
  Receipt Date: 20131226
  Transmission Date: 20140711
  Serious: No
  Sender: FDA-Public Use
  Company Number: US-B.I. PHARMACEUTICALS,INC./RIDGEFIELD-2013-BI-41585BP

PATIENT
  Age: 80 Year
  Sex: Male
  Weight: 86 kg

DRUGS (6)
  1. PRADAXA [Suspect]
     Indication: ATRIAL FIBRILLATION
     Dosage: 300 MG
     Route: 048
     Dates: start: 2012
  2. AREDIA [Concomitant]
     Indication: BONE DISORDER
     Dosage: FORMULATION: INTRAVENOUS
     Dates: end: 201308
  3. TIKOSYN [Concomitant]
     Indication: ATRIAL FIBRILLATION
     Dosage: 500 MCG
     Route: 048
  4. TAMSULOSIN [Concomitant]
     Dosage: 0.4 MG
     Route: 048
  5. BICALUTAMIDE [Concomitant]
     Indication: PROSTATE CANCER
     Dosage: 50 MG
     Route: 048
  6. LUPRON [Concomitant]
     Indication: PROSTATE CANCER
     Dosage: FORMULATION: INTRAMUSCULAR
     Route: 030

REACTIONS (2)
  - Hypoaesthesia [Not Recovered/Not Resolved]
  - Hypoaesthesia [Not Recovered/Not Resolved]
